FAERS Safety Report 4680792-7 (Version None)
Quarter: 2005Q2

REPORT INFORMATION
  Report Type: 
  Country: None (occurrence: None)
  Receive Date: 20050601
  Receipt Date: 20050520
  Transmission Date: 20051028
  Serious: No
  Sender: FDA-Public Use
  Company Number: 11218

PATIENT
  Age: 8 Year
  Sex: Male

DRUGS (11)
  1. CYTARABINE [Suspect]
     Indication: ACUTE LYMPHOCYTIC LEUKAEMIA
     Dosage: 72 MG OTH
     Route: 042
     Dates: start: 20050329, end: 20050410
  2. TIOGUANINE [Concomitant]
  3. SULFAMETHOXAZOLE AND TRIMETHOPRIM [Concomitant]
  4. CYCLOPHOSPHAMIDE [Concomitant]
  5. AMOXICILLIN AND CLAVULANATE POTASSIUM [Concomitant]
  6. METHOTREXATE [Concomitant]
  7. TEICOPLANIN [Concomitant]
  8. GRANISETRON [Concomitant]
  9. AMPHOTERICIN B [Concomitant]
  10. CEFTAZIDIME [Concomitant]
  11. ACYCLOVIR [Concomitant]

REACTIONS (3)
  - FEELING HOT [None]
  - STEVENS-JOHNSON SYNDROME [None]
  - SWELLING FACE [None]
